FAERS Safety Report 8115331-1 (Version None)
Quarter: 2012Q1

REPORT INFORMATION
  Report Type: 
  Country: None (occurrence: None)
  Receive Date: 20120206
  Receipt Date: 20120206
  Transmission Date: 20120608
  Serious: Yes (Other)
  Sender: FDA-Public Use
  Company Number: None

PATIENT
  Age: 55 Year
  Sex: Male
  Weight: 90.718 kg

DRUGS (2)
  1. NUCYNTA ER [Suspect]
     Indication: SPINAL COLUMN INJURY
     Dosage: 200.0 MG
     Route: 048
     Dates: start: 20120114, end: 20120203
  2. NUCYNTA ER [Suspect]
     Indication: PAIN
     Dosage: 200.0 MG
     Route: 048
     Dates: start: 20120114, end: 20120203

REACTIONS (1)
  - DRUG EFFECT DECREASED [None]
